FAERS Safety Report 19932343 (Version 3)
Quarter: 2021Q4

REPORT INFORMATION
  Report Type: Report from Study
  Country: BR (occurrence: BR)
  Receive Date: 20211008
  Receipt Date: 20211117
  Transmission Date: 20220303
  Serious: Yes (Death, Life-Threatening, Hospitalization, Other)
  Sender: FDA-Public Use
  Company Number: NVSC2021BR212690

PATIENT
  Age: 57 Year
  Sex: Female

DRUGS (3)
  1. PIQRAY [Suspect]
     Active Substance: ALPELISIB
     Indication: Product used for unknown indication
     Dosage: 250 MG, QD
     Route: 065
     Dates: start: 20210901, end: 20210921
  2. PIQRAY [Suspect]
     Active Substance: ALPELISIB
     Dosage: 250 MG, QD
     Route: 065
     Dates: end: 20210929
  3. PIQRAY [Suspect]
     Active Substance: ALPELISIB
     Dosage: UNK
     Route: 065
     Dates: start: 20210901, end: 20211027

REACTIONS (7)
  - Death [Fatal]
  - Blood glucose increased [Not Recovered/Not Resolved]
  - Seizure [Recovered/Resolved]
  - Diabetes mellitus [Unknown]
  - Malaise [Unknown]
  - Illness [Unknown]
  - Expired product administered [Unknown]

NARRATIVE: CASE EVENT DATE: 20210901
